FAERS Safety Report 25880525 (Version 1)
Quarter: 2025Q4

REPORT INFORMATION
  Report Type: Spontaneous
  Country: EU (occurrence: EU)
  Receive Date: 20251004
  Receipt Date: 20251004
  Transmission Date: 20260118
  Serious: Yes (Life-Threatening, Other)
  Sender: AUROBINDO
  Company Number: EU-AFSSAPS-ST2025001052

PATIENT
  Age: 1 Hour
  Sex: Male
  Weight: 2.67 kg

DRUGS (1)
  1. AMOXICILLIN [Suspect]
     Active Substance: AMOXICILLIN
     Indication: Spontaneous rupture of membranes
     Dosage: 1000 MILLIGRAM, TOTAL
     Route: 042
     Dates: start: 20240612, end: 20240612

REACTIONS (6)
  - Foetal distress syndrome [Recovered/Resolved]
  - Hypoxic-ischaemic encephalopathy [Recovered/Resolved]
  - Hypoventilation [Recovered/Resolved]
  - Maternal exposure during pregnancy [Recovered/Resolved]
  - Anaphylactic shock [Recovered/Resolved]
  - Hypotonia neonatal [Recovered/Resolved]

NARRATIVE: CASE EVENT DATE: 20240612
